FAERS Safety Report 22066831 (Version 1)
Quarter: 2023Q1

REPORT INFORMATION
  Report Type: Spontaneous
  Country: CA (occurrence: CA)
  Receive Date: 20230306
  Receipt Date: 20230306
  Transmission Date: 20230417
  Serious: Yes (Death, Life-Threatening, Hospitalization, Disabling, Other)
  Sender: FDA-Public Use
  Company Number: CA-BAUSCHBL-2023BNL001766

PATIENT
  Age: 44 Year
  Sex: Female

DRUGS (285)
  1. DICLOFENAC SODIUM [Suspect]
     Active Substance: DICLOFENAC SODIUM
     Indication: Product used for unknown indication
     Route: 058
  2. DICLOFENAC SODIUM [Suspect]
     Active Substance: DICLOFENAC SODIUM
     Route: 065
  3. DICLOFENAC SODIUM [Suspect]
     Active Substance: DICLOFENAC SODIUM
     Route: 065
  4. DICLOFENAC SODIUM [Suspect]
     Active Substance: DICLOFENAC SODIUM
     Route: 048
  5. DICLOFENAC SODIUM [Suspect]
     Active Substance: DICLOFENAC SODIUM
     Route: 065
  6. TRAMADOL HYDROCHLORIDE [Suspect]
     Active Substance: TRAMADOL HYDROCHLORIDE
     Indication: Product used for unknown indication
     Route: 065
  7. DICLOFENAC DIETHYLAMINE [Suspect]
     Active Substance: DICLOFENAC DIETHYLAMINE
     Indication: Product used for unknown indication
     Route: 065
  8. CORTISONE ACETATE [Suspect]
     Active Substance: CORTISONE ACETATE
     Indication: Rheumatoid arthritis
     Route: 065
  9. DESOXIMETASONE [Suspect]
     Active Substance: DESOXIMETASONE
     Indication: Rheumatoid arthritis
     Route: 003
  10. DESOXIMETASONE [Suspect]
     Active Substance: DESOXIMETASONE
     Route: 048
  11. DESOXIMETASONE [Suspect]
     Active Substance: DESOXIMETASONE
     Route: 065
  12. DESOXIMETASONE [Suspect]
     Active Substance: DESOXIMETASONE
     Route: 058
  13. DESOXIMETASONE [Suspect]
     Active Substance: DESOXIMETASONE
     Route: 003
  14. DICLOFENAC POTASSIUM [Suspect]
     Active Substance: DICLOFENAC POTASSIUM
     Indication: Product used for unknown indication
     Route: 065
  15. DICLOFENAC POTASSIUM [Suspect]
     Active Substance: DICLOFENAC POTASSIUM
     Route: 048
  16. HYDROCORTISONE [Suspect]
     Active Substance: HYDROCORTISONE
     Indication: Rheumatoid arthritis
     Route: 065
  17. HYDROCORTISONE BUTYRATE [Suspect]
     Active Substance: HYDROCORTISONE BUTYRATE
     Indication: Rheumatoid arthritis
     Route: 065
  18. CORTISONE ACETATE [Suspect]
     Active Substance: CORTISONE ACETATE
     Indication: Rheumatoid arthritis
     Route: 048
  19. CORTISONE ACETATE [Suspect]
     Active Substance: CORTISONE ACETATE
     Route: 048
  20. CORTISONE ACETATE [Suspect]
     Active Substance: CORTISONE ACETATE
     Route: 065
  21. CORTISONE ACETATE [Suspect]
     Active Substance: CORTISONE ACETATE
     Route: 061
  22. DESOXIMETASONE [Suspect]
     Active Substance: DESOXIMETASONE
     Indication: Rheumatoid arthritis
     Route: 058
  23. DESOXIMETASONE [Suspect]
     Active Substance: DESOXIMETASONE
     Route: 065
  24. DESOXIMETASONE [Suspect]
     Active Substance: DESOXIMETASONE
     Route: 061
  25. DESOXIMETASONE [Suspect]
     Active Substance: DESOXIMETASONE
     Route: 003
  26. DESOXIMETASONE [Suspect]
     Active Substance: DESOXIMETASONE
     Route: 065
  27. DESOXIMETASONE [Suspect]
     Active Substance: DESOXIMETASONE
     Route: 048
  28. DESOXIMETASONE [Suspect]
     Active Substance: DESOXIMETASONE
     Route: 048
  29. DESOXIMETASONE [Suspect]
     Active Substance: DESOXIMETASONE
     Route: 003
  30. DESOXIMETASONE [Suspect]
     Active Substance: DESOXIMETASONE
     Route: 042
  31. DICLOFENAC SODIUM [Suspect]
     Active Substance: DICLOFENAC SODIUM
     Indication: Product used for unknown indication
     Route: 058
  32. DICLOFENAC SODIUM [Suspect]
     Active Substance: DICLOFENAC SODIUM
     Route: 047
  33. ACETAMINOPHEN [Suspect]
     Active Substance: ACETAMINOPHEN
     Indication: Rheumatoid arthritis
     Route: 065
  34. ACETAMINOPHEN [Suspect]
     Active Substance: ACETAMINOPHEN
     Route: 065
  35. ACTEMRA [Suspect]
     Active Substance: TOCILIZUMAB
     Indication: Rheumatoid arthritis
     Route: 042
  36. ACTEMRA [Suspect]
     Active Substance: TOCILIZUMAB
     Route: 042
  37. ACTEMRA [Suspect]
     Active Substance: TOCILIZUMAB
     Route: 065
  38. ACTEMRA [Suspect]
     Active Substance: TOCILIZUMAB
     Route: 042
  39. ACTEMRA [Suspect]
     Active Substance: TOCILIZUMAB
     Route: 042
  40. ACTEMRA [Suspect]
     Active Substance: TOCILIZUMAB
     Route: 042
  41. ACTEMRA [Suspect]
     Active Substance: TOCILIZUMAB
     Route: 042
  42. ACTEMRA [Suspect]
     Active Substance: TOCILIZUMAB
     Route: 042
  43. ACTEMRA [Suspect]
     Active Substance: TOCILIZUMAB
     Route: 042
  44. ACTEMRA [Suspect]
     Active Substance: TOCILIZUMAB
     Route: 042
  45. ACTEMRA [Suspect]
     Active Substance: TOCILIZUMAB
     Route: 042
  46. ADALIMUMAB [Suspect]
     Active Substance: ADALIMUMAB
     Indication: Psoriatic arthropathy
     Dosage: SOLUTION SUBCUTANEOUS
     Route: 065
  47. ADALIMUMAB [Suspect]
     Active Substance: ADALIMUMAB
     Route: 048
  48. ADALIMUMAB [Suspect]
     Active Substance: ADALIMUMAB
     Route: 058
  49. ADALIMUMAB [Suspect]
     Active Substance: ADALIMUMAB
     Route: 058
  50. ALENDRONIC ACID [Suspect]
     Active Substance: ALENDRONIC ACID
     Indication: Rheumatoid arthritis
     Route: 065
  51. ALENDRONIC ACID [Suspect]
     Active Substance: ALENDRONIC ACID
     Route: 048
  52. ALENDRONIC ACID [Suspect]
     Active Substance: ALENDRONIC ACID
     Route: 065
  53. PREDNISONE [Suspect]
     Active Substance: PREDNISONE
     Indication: Rheumatoid arthritis
     Route: 065
  54. PREDNISONE [Suspect]
     Active Substance: PREDNISONE
     Route: 065
  55. PREDNISONE [Suspect]
     Active Substance: PREDNISONE
     Route: 048
  56. APREMILAST [Suspect]
     Active Substance: APREMILAST
     Indication: Product used for unknown indication
     Route: 065
  57. APREMILAST [Suspect]
     Active Substance: APREMILAST
     Route: 065
  58. APREMILAST [Suspect]
     Active Substance: APREMILAST
     Route: 048
  59. APREPITANT [Suspect]
     Active Substance: APREPITANT
     Indication: Product used for unknown indication
     Route: 065
  60. APREPITANT [Suspect]
     Active Substance: APREPITANT
     Route: 065
  61. APREPITANT [Suspect]
     Active Substance: APREPITANT
     Route: 048
  62. ARAVA [Suspect]
     Active Substance: LEFLUNOMIDE
     Indication: Rheumatoid arthritis
     Route: 048
  63. ARAVA [Suspect]
     Active Substance: LEFLUNOMIDE
     Route: 048
  64. ARAVA [Suspect]
     Active Substance: LEFLUNOMIDE
     Route: 048
  65. CALCIUM CARBONATE [Suspect]
     Active Substance: CALCIUM CARBONATE
     Indication: Product used for unknown indication
     Route: 065
  66. CALCIUM GLUBIONATE [Suspect]
     Active Substance: CALCIUM GLUBIONATE
     Indication: Product used for unknown indication
     Route: 065
  67. CELEBREX [Suspect]
     Active Substance: CELECOXIB
     Indication: Product used for unknown indication
     Route: 048
  68. CERTOLIZUMAB PEGOL [Suspect]
     Active Substance: CERTOLIZUMAB PEGOL
     Indication: Product used for unknown indication
     Route: 065
  69. CELECOXIB [Suspect]
     Active Substance: CELECOXIB
     Indication: Product used for unknown indication
     Route: 065
  70. CELECOXIB [Suspect]
     Active Substance: CELECOXIB
     Route: 065
  71. CETIRIZINE [Suspect]
     Active Substance: CETIRIZINE HYDROCHLORIDE
     Indication: Rheumatoid arthritis
     Route: 065
  72. CETIRIZINE [Suspect]
     Active Substance: CETIRIZINE HYDROCHLORIDE
     Route: 065
  73. CETIRIZINE [Suspect]
     Active Substance: CETIRIZINE HYDROCHLORIDE
     Route: 048
  74. CETIRIZINE [Suspect]
     Active Substance: CETIRIZINE HYDROCHLORIDE
     Route: 048
  75. CETIRIZINE HYDROCHLORIDE [Suspect]
     Active Substance: CETIRIZINE HYDROCHLORIDE
     Indication: Rheumatoid arthritis
     Route: 065
  76. CETIRIZINE HYDROCHLORIDE [Suspect]
     Active Substance: CETIRIZINE HYDROCHLORIDE
     Indication: Off label use
     Route: 065
  77. CETIRIZINE HYDROCHLORIDE [Suspect]
     Active Substance: CETIRIZINE HYDROCHLORIDE
     Route: 065
  78. CETIRIZINE HYDROCHLORIDE [Suspect]
     Active Substance: CETIRIZINE HYDROCHLORIDE
     Route: 048
  79. CETIRIZINE HYDROCHLORIDE [Suspect]
     Active Substance: CETIRIZINE HYDROCHLORIDE
     Route: 065
  80. CETIRIZINE HYDROCHLORIDE [Suspect]
     Active Substance: CETIRIZINE HYDROCHLORIDE
     Route: 065
  81. CETIRIZINE HYDROCHLORIDE [Suspect]
     Active Substance: CETIRIZINE HYDROCHLORIDE
     Route: 065
  82. CETIRIZINE HYDROCHLORIDE [Suspect]
     Active Substance: CETIRIZINE HYDROCHLORIDE
     Route: 048
  83. CETIRIZINE HYDROCHLORIDE [Suspect]
     Active Substance: CETIRIZINE HYDROCHLORIDE
     Route: 065
  84. CETIRIZINE HYDROCHLORIDE [Suspect]
     Active Substance: CETIRIZINE HYDROCHLORIDE
     Route: 048
  85. CHLORAPREP [Suspect]
     Active Substance: CHLORHEXIDINE GLUCONATE\ISOPROPYL ALCOHOL
     Indication: Product used for unknown indication
     Route: 061
  86. CHLORAPREP [Suspect]
     Active Substance: CHLORHEXIDINE GLUCONATE\ISOPROPYL ALCOHOL
     Route: 065
  87. CHLORHEXIDINE [Suspect]
     Active Substance: CHLORHEXIDINE
     Indication: Product used for unknown indication
     Route: 065
  88. CHLORHEXIDINE [Suspect]
     Active Substance: CHLORHEXIDINE
     Route: 061
  89. CHLORHEXIDINE [Suspect]
     Active Substance: CHLORHEXIDINE
     Route: 048
  90. CHLORHEXIDINE [Suspect]
     Active Substance: CHLORHEXIDINE
     Route: 002
  91. CHLORHEXIDINE GLUCONATE [Suspect]
     Active Substance: CHLORHEXIDINE GLUCONATE
     Indication: Product used for unknown indication
     Route: 061
  92. CHLORHEXIDINE GLUCONATE [Suspect]
     Active Substance: CHLORHEXIDINE GLUCONATE
     Route: 048
  93. CHLORHEXIDINE GLUCONATE [Suspect]
     Active Substance: CHLORHEXIDINE GLUCONATE
     Route: 002
  94. CIMZIA [Suspect]
     Active Substance: CERTOLIZUMAB PEGOL
     Indication: Rheumatoid arthritis
     Route: 065
  95. CIMZIA [Suspect]
     Active Substance: CERTOLIZUMAB PEGOL
     Route: 065
  96. CIMZIA [Suspect]
     Active Substance: CERTOLIZUMAB PEGOL
     Route: 058
  97. CIMZIA [Suspect]
     Active Substance: CERTOLIZUMAB PEGOL
     Route: 058
  98. CIMZIA [Suspect]
     Active Substance: CERTOLIZUMAB PEGOL
     Route: 058
  99. CIMZIA [Suspect]
     Active Substance: CERTOLIZUMAB PEGOL
     Route: 058
  100. CORTISONE [Suspect]
     Active Substance: CORTISONE
     Indication: Rheumatoid arthritis
     Route: 061
  101. CORTISONE [Suspect]
     Active Substance: CORTISONE
     Route: 058
  102. CORTISONE [Suspect]
     Active Substance: CORTISONE
     Route: 048
  103. CORTISONE [Suspect]
     Active Substance: CORTISONE
     Route: 065
  104. CORTISONE [Suspect]
     Active Substance: CORTISONE
     Route: 003
  105. COSENTYX [Suspect]
     Active Substance: SECUKINUMAB
     Indication: Rheumatoid arthritis
     Route: 065
  106. COSENTYX [Suspect]
     Active Substance: SECUKINUMAB
     Indication: Psoriatic arthropathy
     Route: 005
  107. DOXYCYCLINE [Suspect]
     Active Substance: DOXYCYCLINE
     Indication: Product used for unknown indication
     Route: 065
  108. ENBREL [Suspect]
     Active Substance: ETANERCEPT
     Indication: Rheumatoid arthritis
     Route: 058
  109. ENBREL [Suspect]
     Active Substance: ETANERCEPT
     Indication: Psoriatic arthropathy
     Route: 058
  110. ENBREL [Suspect]
     Active Substance: ETANERCEPT
     Route: 065
  111. ENBREL [Suspect]
     Active Substance: ETANERCEPT
     Route: 058
  112. ENBREL [Suspect]
     Active Substance: ETANERCEPT
     Route: 058
  113. FLUMETHASONE PIVALATE [Suspect]
     Active Substance: FLUMETHASONE PIVALATE
     Indication: Rheumatoid arthritis
     Route: 058
  114. FOLIC ACID [Suspect]
     Active Substance: FOLIC ACID
     Indication: Rheumatoid arthritis
     Route: 048
  115. FOLIC ACID [Suspect]
     Active Substance: FOLIC ACID
     Route: 058
  116. FOLIC ACID [Suspect]
     Active Substance: FOLIC ACID
     Route: 048
  117. FOLIC ACID [Suspect]
     Active Substance: FOLIC ACID
     Route: 048
  118. FOLIC ACID [Suspect]
     Active Substance: FOLIC ACID
     Route: 065
  119. FOLIC ACID [Suspect]
     Active Substance: FOLIC ACID
     Route: 048
  120. FOLIC ACID [Suspect]
     Active Substance: FOLIC ACID
     Route: 065
  121. FOLIC ACID [Suspect]
     Active Substance: FOLIC ACID
     Route: 065
  122. FOLIC ACID [Suspect]
     Active Substance: FOLIC ACID
     Route: 065
  123. FOLIC ACID [Suspect]
     Active Substance: FOLIC ACID
     Route: 065
  124. FOLIC ACID [Suspect]
     Active Substance: FOLIC ACID
     Route: 065
  125. FOSAMAX [Suspect]
     Active Substance: ALENDRONATE SODIUM
     Indication: Rheumatoid arthritis
     Route: 065
  126. FOSAMAX [Suspect]
     Active Substance: ALENDRONATE SODIUM
     Route: 048
  127. GOLIMUMAB [Suspect]
     Active Substance: GOLIMUMAB
     Indication: Rheumatoid arthritis
     Route: 065
  128. GOLIMUMAB [Suspect]
     Active Substance: GOLIMUMAB
     Route: 058
  129. HUMIRA [Suspect]
     Active Substance: ADALIMUMAB
     Indication: Psoriatic arthropathy
     Route: 058
  130. HUMIRA [Suspect]
     Active Substance: ADALIMUMAB
     Indication: Rheumatoid arthritis
     Route: 058
  131. HUMIRA [Suspect]
     Active Substance: ADALIMUMAB
     Route: 058
  132. HUMIRA [Suspect]
     Active Substance: ADALIMUMAB
     Route: 065
  133. HYDROCORTISONE [Suspect]
     Active Substance: HYDROCORTISONE
     Indication: Rheumatoid arthritis
     Route: 003
  134. HYDROCORTISONE [Suspect]
     Active Substance: HYDROCORTISONE
     Route: 065
  135. HYDROCORTISONE [Suspect]
     Active Substance: HYDROCORTISONE
     Route: 048
  136. HYDROCORTISONE [Suspect]
     Active Substance: HYDROCORTISONE
     Route: 058
  137. HYDROCORTISONE SODIUM SUCCINATE [Suspect]
     Active Substance: HYDROCORTISONE SODIUM SUCCINATE
     Indication: Rheumatoid arthritis
     Route: 048
  138. HYDROCORTISONE SODIUM SUCCINATE [Suspect]
     Active Substance: HYDROCORTISONE SODIUM SUCCINATE
     Route: 065
  139. HYDROCORTISONE SODIUM SUCCINATE [Suspect]
     Active Substance: HYDROCORTISONE SODIUM SUCCINATE
     Route: 065
  140. HYDROXYCHLOROQUINE [Suspect]
     Active Substance: HYDROXYCHLOROQUINE
     Indication: Rheumatoid arthritis
     Route: 048
  141. HYDROXYCHLOROQUINE [Suspect]
     Active Substance: HYDROXYCHLOROQUINE
     Route: 048
  142. HYDROXYCHLOROQUINE [Suspect]
     Active Substance: HYDROXYCHLOROQUINE
     Route: 065
  143. HYDROXYCHLOROQUINE [Suspect]
     Active Substance: HYDROXYCHLOROQUINE
     Route: 065
  144. HYDROXYCHLOROQUINE [Suspect]
     Active Substance: HYDROXYCHLOROQUINE
     Route: 065
  145. HYDROXYCHLOROQUINE [Suspect]
     Active Substance: HYDROXYCHLOROQUINE
     Route: 065
  146. HYDROXYCHLOROQUINE [Suspect]
     Active Substance: HYDROXYCHLOROQUINE
     Route: 048
  147. HYDROXYCHLOROQUINE SULFATE [Suspect]
     Active Substance: HYDROXYCHLOROQUINE SULFATE
     Indication: Rheumatoid arthritis
     Route: 065
  148. HYDROXYCHLOROQUINE SULFATE [Suspect]
     Active Substance: HYDROXYCHLOROQUINE SULFATE
     Indication: Systemic lupus erythematosus
     Route: 048
  149. HYDROXYCHLOROQUINE SULFATE [Suspect]
     Active Substance: HYDROXYCHLOROQUINE SULFATE
     Route: 048
  150. HYDROXYCHLOROQUINE SULFATE [Suspect]
     Active Substance: HYDROXYCHLOROQUINE SULFATE
     Route: 065
  151. HYDROXYCHLOROQUINE SULFATE [Suspect]
     Active Substance: HYDROXYCHLOROQUINE SULFATE
     Route: 058
  152. HYDROXYCHLOROQUINE SULFATE [Suspect]
     Active Substance: HYDROXYCHLOROQUINE SULFATE
     Route: 065
  153. HYDROXYCHLOROQUINE SULFATE [Suspect]
     Active Substance: HYDROXYCHLOROQUINE SULFATE
     Route: 048
  154. INFLIXIMAB [Suspect]
     Active Substance: INFLIXIMAB
     Indication: Rheumatoid arthritis
     Route: 065
  155. INFLIXIMAB [Suspect]
     Active Substance: INFLIXIMAB
     Route: 065
  156. INFLIXIMAB [Suspect]
     Active Substance: INFLIXIMAB
     Route: 042
  157. ISOPROPYL ALCOHOL [Suspect]
     Active Substance: ISOPROPYL ALCOHOL
     Indication: Product used for unknown indication
     Dosage: LIQUID TOPICAL
     Route: 065
  158. LEFLUNOMIDE [Suspect]
     Active Substance: LEFLUNOMIDE
     Indication: Rheumatoid arthritis
     Route: 065
  159. LEFLUNOMIDE [Suspect]
     Active Substance: LEFLUNOMIDE
     Route: 048
  160. LYRICA [Suspect]
     Active Substance: PREGABALIN
     Indication: Product used for unknown indication
     Route: 065
  161. METHOTREXATE [Suspect]
     Active Substance: METHOTREXATE
     Indication: Rheumatoid arthritis
     Route: 013
  162. METHOTREXATE [Suspect]
     Active Substance: METHOTREXATE
     Route: 013
  163. METHOTREXATE [Suspect]
     Active Substance: METHOTREXATE
     Route: 058
  164. METHOTREXATE [Suspect]
     Active Substance: METHOTREXATE
     Route: 065
  165. METHOTREXATE [Suspect]
     Active Substance: METHOTREXATE
     Route: 048
  166. METHOTREXATE [Suspect]
     Active Substance: METHOTREXATE
     Route: 048
  167. METHOTREXATE [Suspect]
     Active Substance: METHOTREXATE
     Route: 013
  168. METHOTREXATE [Suspect]
     Active Substance: METHOTREXATE
     Route: 048
  169. METHOTREXATE [Suspect]
     Active Substance: METHOTREXATE
     Route: 058
  170. METHOTREXATE [Suspect]
     Active Substance: METHOTREXATE
     Route: 058
  171. METHOTREXATE [Suspect]
     Active Substance: METHOTREXATE
     Route: 058
  172. METHOTREXATE [Suspect]
     Active Substance: METHOTREXATE
     Route: 065
  173. METHOTREXATE [Suspect]
     Active Substance: METHOTREXATE
     Route: 058
  174. METHOTREXATE [Suspect]
     Active Substance: METHOTREXATE
     Route: 048
  175. METHOTREXATE [Suspect]
     Active Substance: METHOTREXATE
     Route: 065
  176. METHOTREXATE [Suspect]
     Active Substance: METHOTREXATE
     Route: 048
  177. METHOTREXATE [Suspect]
     Active Substance: METHOTREXATE
     Route: 048
  178. METHOTREXATE [Suspect]
     Active Substance: METHOTREXATE
     Route: 013
  179. METHOTREXATE [Suspect]
     Active Substance: METHOTREXATE
     Route: 013
  180. METHOTREXATE [Suspect]
     Active Substance: METHOTREXATE
     Route: 048
  181. METHOTREXATE [Suspect]
     Active Substance: METHOTREXATE
     Route: 048
  182. METHOTREXATE [Suspect]
     Active Substance: METHOTREXATE
     Route: 048
  183. METHOTREXATE [Suspect]
     Active Substance: METHOTREXATE
     Route: 065
  184. METHOTREXATE [Suspect]
     Active Substance: METHOTREXATE
     Route: 048
  185. METHOTREXATE [Suspect]
     Active Substance: METHOTREXATE
     Route: 065
  186. METHOTREXATE [Suspect]
     Active Substance: METHOTREXATE
     Route: 048
  187. METHOTREXATE [Suspect]
     Active Substance: METHOTREXATE
     Route: 048
  188. METHOTREXATE [Suspect]
     Active Substance: METHOTREXATE
     Route: 048
  189. METHOTREXATE [Suspect]
     Active Substance: METHOTREXATE
     Route: 048
  190. MYCOPHENOLATE MOFETIL [Suspect]
     Active Substance: MYCOPHENOLATE MOFETIL
     Indication: Product used for unknown indication
     Route: 065
  191. NAPROXEN SODIUM [Suspect]
     Active Substance: NAPROXEN SODIUM
     Indication: Rheumatoid arthritis
     Route: 065
  192. NAPROXEN SODIUM [Suspect]
     Active Substance: NAPROXEN SODIUM
     Route: 065
  193. NEOMYCIN [Suspect]
     Active Substance: NEOMYCIN
     Indication: Product used for unknown indication
     Route: 065
  194. ORENCIA [Suspect]
     Active Substance: ABATACEPT
     Indication: Rheumatoid arthritis
     Route: 042
  195. ORENCIA [Suspect]
     Active Substance: ABATACEPT
     Route: 058
  196. ORENCIA [Suspect]
     Active Substance: ABATACEPT
     Route: 058
  197. ORENCIA [Suspect]
     Active Substance: ABATACEPT
     Route: 041
  198. ORENCIA [Suspect]
     Active Substance: ABATACEPT
     Route: 058
  199. ORENCIA [Suspect]
     Active Substance: ABATACEPT
     Route: 065
  200. ORENCIA [Suspect]
     Active Substance: ABATACEPT
     Route: 065
  201. ORENCIA [Suspect]
     Active Substance: ABATACEPT
     Route: 058
  202. OTEZLA [Suspect]
     Active Substance: APREMILAST
     Indication: Product used for unknown indication
     Route: 048
  203. OXYCODONE [Suspect]
     Active Substance: OXYCODONE
     Indication: Product used for unknown indication
     Route: 065
  204. OXYCODONE HYDROCHLORIDE [Suspect]
     Active Substance: OXYCODONE HYDROCHLORIDE
     Indication: Product used for unknown indication
     Route: 065
  205. OXYCODONE TEREPHTHALATE [Suspect]
     Active Substance: OXYCODONE TEREPHTHALATE
     Indication: Product used for unknown indication
     Route: 065
  206. PERIOGARD [Suspect]
     Active Substance: CHLORHEXIDINE GLUCONATE
     Indication: Product used for unknown indication
     Route: 065
  207. PERIOGARD [Suspect]
     Active Substance: CHLORHEXIDINE GLUCONATE
     Route: 002
  208. PHTHALYLSULFATHIAZOLE [Suspect]
     Active Substance: PHTHALYLSULFATHIAZOLE
     Indication: Rheumatoid arthritis
     Route: 048
  209. PHTHALYLSULFATHIAZOLE [Suspect]
     Active Substance: PHTHALYLSULFATHIAZOLE
     Dosage: INTRACARDIAC
     Route: 065
  210. PHTHALYLSULFATHIAZOLE [Suspect]
     Active Substance: PHTHALYLSULFATHIAZOLE
     Route: 065
  211. PHTHALYLSULFATHIAZOLE [Suspect]
     Active Substance: PHTHALYLSULFATHIAZOLE
     Route: 048
  212. PHTHALYLSULFATHIAZOLE [Suspect]
     Active Substance: PHTHALYLSULFATHIAZOLE
     Route: 048
  213. PHTHALYLSULFATHIAZOLE [Suspect]
     Active Substance: PHTHALYLSULFATHIAZOLE
     Route: 042
  214. PHTHALYLSULFATHIAZOLE [Suspect]
     Active Substance: PHTHALYLSULFATHIAZOLE
     Route: 065
  215. PREDNISONE [Suspect]
     Active Substance: PREDNISONE
     Indication: Rheumatoid arthritis
     Route: 048
  216. PREDNISONE [Suspect]
     Active Substance: PREDNISONE
     Indication: Psoriatic arthropathy
     Route: 042
  217. PREDNISONE [Suspect]
     Active Substance: PREDNISONE
     Indication: Condition aggravated
     Route: 048
  218. PREDNISONE [Suspect]
     Active Substance: PREDNISONE
     Route: 065
  219. PREDNISONE [Suspect]
     Active Substance: PREDNISONE
     Route: 048
  220. PREDNISONE [Suspect]
     Active Substance: PREDNISONE
     Route: 065
  221. PREDNISONE [Suspect]
     Active Substance: PREDNISONE
     Route: 065
  222. PREDNISONE [Suspect]
     Active Substance: PREDNISONE
     Route: 048
  223. PREGABALIN [Suspect]
     Active Substance: PREGABALIN
     Indication: Product used for unknown indication
     Route: 065
  224. PSEUDOEPHEDRINE [Suspect]
     Active Substance: PSEUDOEPHEDRINE
     Indication: Product used for unknown indication
     Route: 065
  225. PSEUDOEPHEDRINE HYDROCHLORIDE [Suspect]
     Active Substance: PSEUDOEPHEDRINE HYDROCHLORIDE
     Indication: Rheumatoid arthritis
     Route: 065
  226. PSEUDOEPHEDRINE HYDROCHLORIDE [Suspect]
     Active Substance: PSEUDOEPHEDRINE HYDROCHLORIDE
     Route: 065
  227. PSEUDOEPHEDRINE HYDROCHLORIDE [Suspect]
     Active Substance: PSEUDOEPHEDRINE HYDROCHLORIDE
     Route: 065
  228. CETIRIZINE HYDROCHLORIDE\PSEUDOEPHEDRINE HYDROCHLORIDE [Suspect]
     Active Substance: CETIRIZINE HYDROCHLORIDE\PSEUDOEPHEDRINE HYDROCHLORIDE
     Indication: Rheumatoid arthritis
     Route: 065
  229. CETIRIZINE HYDROCHLORIDE\PSEUDOEPHEDRINE HYDROCHLORIDE [Suspect]
     Active Substance: CETIRIZINE HYDROCHLORIDE\PSEUDOEPHEDRINE HYDROCHLORIDE
     Route: 048
  230. CETIRIZINE HYDROCHLORIDE\PSEUDOEPHEDRINE HYDROCHLORIDE [Suspect]
     Active Substance: CETIRIZINE HYDROCHLORIDE\PSEUDOEPHEDRINE HYDROCHLORIDE
     Route: 065
  231. CETIRIZINE HYDROCHLORIDE\PSEUDOEPHEDRINE HYDROCHLORIDE [Suspect]
     Active Substance: CETIRIZINE HYDROCHLORIDE\PSEUDOEPHEDRINE HYDROCHLORIDE
     Dosage: TABLET (EXTENDED RELEASE)
     Route: 065
  232. CETIRIZINE HYDROCHLORIDE [Suspect]
     Active Substance: CETIRIZINE HYDROCHLORIDE
     Indication: Rheumatoid arthritis
     Route: 048
  233. CETIRIZINE HYDROCHLORIDE [Suspect]
     Active Substance: CETIRIZINE HYDROCHLORIDE
     Route: 065
  234. CETIRIZINE HYDROCHLORIDE [Suspect]
     Active Substance: CETIRIZINE HYDROCHLORIDE
     Route: 065
  235. REMICADE [Suspect]
     Active Substance: INFLIXIMAB
     Indication: Rheumatoid arthritis
     Route: 042
  236. REMICADE [Suspect]
     Active Substance: INFLIXIMAB
     Route: 042
  237. REMICADE [Suspect]
     Active Substance: INFLIXIMAB
     Route: 065
  238. RITUXIMAB [Suspect]
     Active Substance: RITUXIMAB
     Indication: Rheumatoid arthritis
     Route: 042
  239. RITUXIMAB [Suspect]
     Active Substance: RITUXIMAB
     Route: 058
  240. SULFASALAZINE [Suspect]
     Active Substance: SULFASALAZINE
     Indication: Rheumatoid arthritis
     Route: 048
  241. SULFASALAZINE [Suspect]
     Active Substance: SULFASALAZINE
     Route: 048
  242. SULFASALAZINE [Suspect]
     Active Substance: SULFASALAZINE
     Route: 065
  243. SULFASALAZINE [Suspect]
     Active Substance: SULFASALAZINE
     Route: 048
  244. SULFASALAZINE [Suspect]
     Active Substance: SULFASALAZINE
     Route: 048
  245. SIMPONI [Suspect]
     Active Substance: GOLIMUMAB
     Indication: Rheumatoid arthritis
     Route: 052
  246. SIMPONI [Suspect]
     Active Substance: GOLIMUMAB
     Indication: Psoriatic arthropathy
     Route: 042
  247. SIMPONI [Suspect]
     Active Substance: GOLIMUMAB
     Route: 058
  248. SIMPONI [Suspect]
     Active Substance: GOLIMUMAB
     Route: 065
  249. SIMPONI [Suspect]
     Active Substance: GOLIMUMAB
     Route: 058
  250. STELARA [Suspect]
     Active Substance: USTEKINUMAB
     Indication: Product used for unknown indication
     Dosage: SOLUTION SUBCUTANEOUS
     Route: 065
  251. STELARA [Suspect]
     Active Substance: USTEKINUMAB
     Route: 058
  252. STELARA [Suspect]
     Active Substance: USTEKINUMAB
     Route: 058
  253. STELARA [Suspect]
     Active Substance: USTEKINUMAB
     Route: 042
  254. SULFAMETHOXAZOLE [Suspect]
     Active Substance: SULFAMETHOXAZOLE
     Indication: Product used for unknown indication
     Route: 065
  255. SULFAMETHOXAZOLE\TRIMETHOPRIM [Suspect]
     Active Substance: SULFAMETHOXAZOLE\TRIMETHOPRIM
     Indication: Product used for unknown indication
     Route: 065
  256. SULFASALAZINE [Suspect]
     Active Substance: SULFASALAZINE
     Indication: Product used for unknown indication
     Route: 065
  257. SULFASALAZINE [Suspect]
     Active Substance: SULFASALAZINE
     Route: 048
  258. SULFASALAZINE [Suspect]
     Active Substance: SULFASALAZINE
     Route: 048
  259. SULFASALAZINE [Suspect]
     Active Substance: SULFASALAZINE
     Route: 048
  260. SULFASALAZINE [Suspect]
     Active Substance: SULFASALAZINE
     Route: 065
  261. SULFASALAZINE [Suspect]
     Active Substance: SULFASALAZINE
     Route: 048
  262. SULFASALAZINE [Suspect]
     Active Substance: SULFASALAZINE
     Route: 048
  263. SULFASALAZINE [Suspect]
     Active Substance: SULFASALAZINE
     Route: 065
  264. SULFASALAZINE [Suspect]
     Active Substance: SULFASALAZINE
     Route: 065
  265. SULFASALAZINE [Suspect]
     Active Substance: SULFASALAZINE
     Route: 048
  266. TOCILIZUMAB [Suspect]
     Active Substance: TOCILIZUMAB
     Indication: Rheumatoid arthritis
     Route: 065
  267. TOCILIZUMAB [Suspect]
     Active Substance: TOCILIZUMAB
     Route: 058
  268. TOFACITINIB CITRATE [Suspect]
     Active Substance: TOFACITINIB CITRATE
     Indication: Rheumatoid arthritis
     Route: 058
  269. TOFACITINIB CITRATE [Suspect]
     Active Substance: TOFACITINIB CITRATE
     Indication: Psoriatic arthropathy
     Route: 065
  270. TOFACITINIB CITRATE [Suspect]
     Active Substance: TOFACITINIB CITRATE
     Route: 048
  271. TOFACITINIB CITRATE [Suspect]
     Active Substance: TOFACITINIB CITRATE
     Route: 065
  272. TOFACITINIB CITRATE [Suspect]
     Active Substance: TOFACITINIB CITRATE
     Route: 048
  273. TRIAMCINOLONE ACETONIDE [Suspect]
     Active Substance: TRIAMCINOLONE ACETONIDE
     Indication: Rheumatoid arthritis
     Route: 065
  274. TRIAMCINOLONE ACETONIDE [Suspect]
     Active Substance: TRIAMCINOLONE ACETONIDE
     Dosage: SUSPENSION INTRAARTICULAR
     Route: 065
  275. USTEKINUMAB [Suspect]
     Active Substance: USTEKINUMAB
     Indication: Psoriatic arthropathy
     Route: 042
  276. USTEKINUMAB [Suspect]
     Active Substance: USTEKINUMAB
     Route: 058
  277. VITAMIN C [Suspect]
     Active Substance: ASCORBIC ACID
     Indication: Product used for unknown indication
     Route: 065
  278. VITAMIN D3 [Suspect]
     Active Substance: CHOLECALCIFEROL
     Indication: Product used for unknown indication
     Route: 065
  279. PREDNISONE [Suspect]
     Active Substance: PREDNISONE
     Indication: Rheumatoid arthritis
     Route: 065
  280. PREDNISONE [Suspect]
     Active Substance: PREDNISONE
     Route: 048
  281. XELJANZ [Suspect]
     Active Substance: TOFACITINIB CITRATE
     Indication: Rheumatoid arthritis
     Route: 065
  282. XELJANZ [Suspect]
     Active Substance: TOFACITINIB CITRATE
     Route: 048
  283. XELJANZ [Suspect]
     Active Substance: TOFACITINIB CITRATE
     Route: 048
  284. XELJANZ [Suspect]
     Active Substance: TOFACITINIB CITRATE
     Route: 065
  285. HYDROCORTISONE BUTYRATE [Suspect]
     Active Substance: HYDROCORTISONE BUTYRATE
     Indication: Rheumatoid arthritis
     Route: 058

REACTIONS (60)
  - Dry mouth [Fatal]
  - Duodenal ulcer perforation [Fatal]
  - Facet joint syndrome [Fatal]
  - Fatigue [Fatal]
  - Fibromyalgia [Fatal]
  - Folliculitis [Fatal]
  - General physical health deterioration [Fatal]
  - Glossodynia [Fatal]
  - Hand deformity [Fatal]
  - Helicobacter infection [Fatal]
  - Hepatic enzyme increased [Fatal]
  - Hypersensitivity [Fatal]
  - Hypertension [Fatal]
  - Impaired healing [Fatal]
  - Infection [Fatal]
  - Inflammation [Fatal]
  - Infusion related reaction [Fatal]
  - Injury [Fatal]
  - Insomnia [Fatal]
  - Irritable bowel syndrome [Fatal]
  - Joint range of motion decreased [Fatal]
  - Joint swelling [Fatal]
  - Lip dry [Fatal]
  - Liver disorder [Fatal]
  - Malaise [Fatal]
  - Mobility decreased [Fatal]
  - C-reactive protein [Fatal]
  - Hypoaesthesia [Fatal]
  - Pruritus [Fatal]
  - Psoriatic arthropathy [Fatal]
  - Pyrexia [Fatal]
  - Rash [Fatal]
  - Rheumatic fever [Fatal]
  - Rheumatoid arthritis [Fatal]
  - Rheumatoid factor positive [Fatal]
  - Road traffic accident [Fatal]
  - Sciatica [Fatal]
  - Sinusitis [Fatal]
  - Sleep disorder [Fatal]
  - Sleep disorder due to general medical condition, insomnia type [Fatal]
  - Stomatitis [Fatal]
  - Swelling [Fatal]
  - Swollen joint count increased [Fatal]
  - Synovitis [Fatal]
  - Systemic lupus erythematosus [Fatal]
  - Type 2 diabetes mellitus [Fatal]
  - Urticaria [Fatal]
  - Vomiting [Fatal]
  - Drug intolerance [Fatal]
  - Weight increased [Fatal]
  - Ill-defined disorder [Fatal]
  - Wheezing [Fatal]
  - Wound [Fatal]
  - Treatment failure [Fatal]
  - Therapeutic product effect decreased [Fatal]
  - Drug ineffective [Fatal]
  - Therapy non-responder [Fatal]
  - Medication error [Fatal]
  - Product use in unapproved indication [Fatal]
  - Off label use [Fatal]
